FAERS Safety Report 9763802 (Version 2)
Quarter: 2014Q1

REPORT INFORMATION
  Report Type: Spontaneous
  Country: US (occurrence: US)
  Receive Date: 20131216
  Receipt Date: 20140122
  Transmission Date: 20141002
  Serious: No
  Sender: FDA-Public Use
  Company Number: US-BIOGENIDEC-2013BI111260

PATIENT
  Sex: Female

DRUGS (1)
  1. TECFIDERA [Suspect]
     Indication: MULTIPLE SCLEROSIS
     Route: 048
     Dates: start: 20130601, end: 20130714

REACTIONS (5)
  - Weight increased [Unknown]
  - Back pain [Unknown]
  - Constipation [Unknown]
  - Flushing [Unknown]
  - Drug ineffective [Recovered/Resolved]
